FAERS Safety Report 10086450 (Version 1)
Quarter: 2014Q2

REPORT INFORMATION
  Report Type: Spontaneous
  Country: US (occurrence: None)
  Receive Date: 20140417
  Receipt Date: 20140417
  Transmission Date: 20141212
  Serious: No
  Sender: FDA-Public Use
  Company Number: None

PATIENT
  Sex: Female
  Weight: 59.3 kg

DRUGS (2)
  1. CARBOPLATIN [Suspect]
     Dates: end: 20140324
  2. PACLITAXEL [Suspect]
     Dates: end: 20140324

REACTIONS (3)
  - Neutropenia [None]
  - Leukopenia [None]
  - Lymphopenia [None]
